FAERS Safety Report 6684199-2 (Version None)
Quarter: 2010Q2

REPORT INFORMATION
  Report Type: 
  Country: None (occurrence: None)
  Receive Date: 20100416
  Receipt Date: 20100412
  Transmission Date: 20101027
  Serious: Yes (Hospitalization)
  Sender: FDA-Public Use
  Company Number: BR-ASTRAZENECA-2010SE16197

PATIENT
  Age: 76 Year
  Sex: Male

DRUGS (5)
  1. CRESTOR [Suspect]
     Route: 048
     Dates: start: 20100301
  2. CLOPIDOGREL [Concomitant]
     Route: 065
  3. CARVEDILOL [Concomitant]
     Route: 065
  4. LOSARTAN POTASSIUM [Concomitant]
     Route: 065
  5. VASTAREL [Concomitant]
     Route: 065

REACTIONS (3)
  - FATIGUE [None]
  - HAEMATEMESIS [None]
  - MALAISE [None]
